FAERS Safety Report 5114171-5 (Version None)
Quarter: 2006Q3

REPORT INFORMATION
  Report Type: 
  Country: None (occurrence: None)
  Receive Date: 20060920
  Receipt Date: 20060907
  Transmission Date: 20061208
  Serious: Yes (Life-Threatening, Hospitalization, Other)
  Sender: FDA-Public Use
  Company Number: 2006109439

PATIENT
  Age: 29 Year
  Sex: Male
  Weight: 80 kg

DRUGS (2)
  1. PREGABALIN             (PREGABALIN) [Suspect]
     Dosage: (11 GRAM)
  2. LAMOTRIGINE [Suspect]
     Dosage: 32.2 GRAM (32.2 GRAM, 1 IN 1 D), ORAL
     Route: 048

REACTIONS (6)
  - AGITATION [None]
  - COMA [None]
  - CONVULSION [None]
  - GRAND MAL CONVULSION [None]
  - OVERDOSE [None]
  - URINARY RETENTION [None]
